FAERS Safety Report 20842749 (Version 2)
Quarter: 2022Q3

REPORT INFORMATION
  Report Type: Spontaneous
  Country: US (occurrence: US)
  Receive Date: 20220518
  Receipt Date: 20220815
  Transmission Date: 20221026
  Serious: No
  Sender: FDA-Public Use
  Company Number: US-BRISTOL-MYERS SQUIBB COMPANY-2022-040480

PATIENT
  Age: 75 Year
  Sex: Female
  Weight: 53.98 kg

DRUGS (2)
  1. REVLIMID [Suspect]
     Active Substance: LENALIDOMIDE
     Indication: Plasma cell myeloma
     Dosage: EVERY OTHER DAY, 21D ON, 7D
     Route: 048
     Dates: start: 20210430
  2. REVLIMID [Suspect]
     Active Substance: LENALIDOMIDE
     Dosage: FREQ: 21D ON 7D OFF
     Route: 048
     Dates: start: 20200805

REACTIONS (2)
  - Blood creatinine increased [Recovering/Resolving]
  - Diarrhoea [Unknown]
